FAERS Safety Report 5582932-4 (Version None)
Quarter: 2008Q1

REPORT INFORMATION
  Report Type: 
  Country: None (occurrence: None)
  Receive Date: 20080107
  Receipt Date: 20071228
  Transmission Date: 20080703
  Serious: Yes (Hospitalization)
  Sender: FDA-Public Use
  Company Number: AU-ROCHE-538954

PATIENT
  Age: 54 Year
  Sex: Female
  Weight: 73 kg

DRUGS (1)
  1. CAPECITABINE [Suspect]
     Indication: COLON CANCER
     Dosage: THE PATIENT WAS IN CYCLE 2. THERAPY INTERRUPTED
     Route: 048
     Dates: start: 20071011

REACTIONS (1)
  - SMALL INTESTINAL PERFORATION [None]
